FAERS Safety Report 23437090 (Version 1)
Quarter: 2024Q1

REPORT INFORMATION
  Report Type: Spontaneous
  Country: US (occurrence: US)
  Receive Date: 20240124
  Receipt Date: 20240124
  Transmission Date: 20240410
  Serious: No
  Sender: FDA-Public Use
  Company Number: US-AMGEN-USASP2024014745

PATIENT
  Sex: Female

DRUGS (2)
  1. MVASI [Suspect]
     Active Substance: BEVACIZUMAB-AWWB
     Indication: Bone cancer metastatic
     Dosage: 850 MILLIGRAM (STRENGTH: 400 MG)
     Route: 065
  2. MVASI [Suspect]
     Active Substance: BEVACIZUMAB-AWWB
     Indication: Cervix cancer metastatic
     Dosage: 850 MILLIGRAM STRENGTH: 100 MG)
     Route: 065

REACTIONS (1)
  - Diarrhoea [Unknown]
